FAERS Safety Report 10284670 (Version 2)
Quarter: 2014Q3

REPORT INFORMATION
  Report Type: Spontaneous
  Country: GB (occurrence: GB)
  Receive Date: 20140708
  Receipt Date: 20140708
  Transmission Date: 20150326
  Serious: Yes (Death)
  Sender: FDA-Public Use
  Company Number: GB-SANOFI-AVENTIS-2012SA037540

PATIENT
  Age: 57 Year
  Sex: Male

DRUGS (10)
  1. FLUDARABINE PHOSPHATE. [Suspect]
     Active Substance: FLUDARABINE PHOSPHATE
     Indication: CHRONIC LYMPHOCYTIC LEUKAEMIA
     Dosage: 1 CYCLES
     Route: 065
     Dates: start: 20090103, end: 20091009
  2. FLUDARABINE PHOSPHATE. [Suspect]
     Active Substance: FLUDARABINE PHOSPHATE
     Indication: CHRONIC LYMPHOCYTIC LEUKAEMIA
     Dosage: 3 CYCLES
     Route: 065
     Dates: start: 2008
  3. FLUDARABINE PHOSPHATE. [Suspect]
     Active Substance: FLUDARABINE PHOSPHATE
     Indication: CHRONIC LYMPHOCYTIC LEUKAEMIA
     Dosage: 1 CYCLES
     Route: 065
     Dates: start: 2011
  4. CYCLOPHOSPHAMIDE. [Suspect]
     Active Substance: CYCLOPHOSPHAMIDE
     Indication: CHRONIC LYMPHOCYTIC LEUKAEMIA
     Dosage: 1 CYCLE
     Route: 065
     Dates: start: 2011
  5. FLUDARABINE PHOSPHATE. [Suspect]
     Active Substance: FLUDARABINE PHOSPHATE
     Indication: CHRONIC LYMPHOCYTIC LEUKAEMIA
     Dosage: 2 CYCLES
     Route: 065
     Dates: start: 2007
  6. CYCLOPHOSPHAMIDE. [Suspect]
     Active Substance: CYCLOPHOSPHAMIDE
     Indication: CHRONIC LYMPHOCYTIC LEUKAEMIA
     Dosage: 2 CYCLE
     Route: 065
     Dates: start: 2007
  7. CYCLOPHOSPHAMIDE. [Suspect]
     Active Substance: CYCLOPHOSPHAMIDE
     Indication: CHRONIC LYMPHOCYTIC LEUKAEMIA
     Dosage: 3 CYCLE
     Route: 065
     Dates: start: 2008
  8. CYCLOPHOSPHAMIDE. [Suspect]
     Active Substance: CYCLOPHOSPHAMIDE
     Indication: CHRONIC LYMPHOCYTIC LEUKAEMIA
     Dosage: 1 CYCLE
     Route: 065
     Dates: start: 20090103, end: 20091009
  9. FLUDARABINE PHOSPHATE. [Suspect]
     Active Substance: FLUDARABINE PHOSPHATE
     Indication: CHRONIC LYMPHOCYTIC LEUKAEMIA
     Dosage: 3 CYCLES
     Route: 065
     Dates: start: 2004
  10. RITUXIMAB [Concomitant]
     Active Substance: RITUXIMAB
     Dates: start: 20110404, end: 20110404

REACTIONS (11)
  - Human herpesvirus 6 infection [Fatal]
  - Histiocytosis haematophagic [Fatal]
  - Splenomegaly [Fatal]
  - Platelet count decreased [Fatal]
  - Pyrexia [Fatal]
  - Neutropenic sepsis [Fatal]
  - Haemoglobin decreased [Fatal]
  - Serum ferritin increased [Fatal]
  - Blood triglycerides increased [Fatal]
  - Blood fibrinogen decreased [Fatal]
  - Pancytopenia [Fatal]

NARRATIVE: CASE EVENT DATE: 20110515
